FAERS Safety Report 9415585 (Version 2)
Quarter: 2013Q3

REPORT INFORMATION
  Report Type: Report from Study
  Country: US (occurrence: US)
  Receive Date: 20130723
  Receipt Date: 20130724
  Transmission Date: 20140515
  Serious: No
  Sender: FDA-Public Use
  Company Number: US-BAYER-2013-086935

PATIENT
  Sex: Female

DRUGS (1)
  1. MIRENA [Suspect]
     Dosage: 20 MCG/24HR, CONT
     Dates: start: 2005, end: 201306

REACTIONS (6)
  - Hypomenorrhoea [None]
  - Dyspareunia [None]
  - Hunger [None]
  - Nausea [None]
  - Abdominal distension [None]
  - Device misuse [None]
